FAERS Safety Report 9314677 (Version 3)
Quarter: 2013Q2

REPORT INFORMATION
  Report Type: Spontaneous
  Country: AT (occurrence: IT)
  Receive Date: 20130529
  Receipt Date: 20130624
  Transmission Date: 20140414
  Serious: Yes (Death, Hospitalization)
  Sender: FDA-Public Use
  Company Number: IT-B.I. PHARMACEUTICALS,INC./RIDGEFIELD-2013-AP-00421AP

PATIENT
  Age: 88 Year
  Sex: Male
  Weight: 80 kg

DRUGS (2)
  1. PRADAXA [Suspect]
     Indication: ATRIAL FIBRILLATION
     Dosage: 220 MG
     Route: 048
     Dates: start: 201204, end: 201304
  2. ACECOMB [Concomitant]
     Indication: HYPERTENSION
     Route: 048

REACTIONS (8)
  - Cerebral haemorrhage [Fatal]
  - Fall [Fatal]
  - Brain death [Fatal]
  - Head injury [Unknown]
  - Epistaxis [Unknown]
  - Loss of consciousness [Unknown]
  - Fall [Unknown]
  - Injury [Unknown]
